FAERS Safety Report 5875926-2 (Version None)
Quarter: 2008Q3

REPORT INFORMATION
  Report Type: 
  Country: None (occurrence: None)
  Receive Date: 20080910
  Receipt Date: 20080902
  Transmission Date: 20090109
  Serious: Yes (Death)
  Sender: FDA-Public Use
  Company Number: US-JNJFOC-20080501732

PATIENT
  Age: 55 Year
  Sex: Male
  Weight: 81.65 kg

DRUGS (7)
  1. ULTRACET [Suspect]
     Indication: BACK PAIN
     Route: 048
  2. CELEXA [Interacting]
     Route: 048
  3. CELEXA [Interacting]
     Route: 048
  4. CELEXA [Interacting]
     Indication: DEPRESSION
     Route: 048
  5. ACIPHEX [Concomitant]
     Indication: DRUG USE FOR UNKNOWN INDICATION
  6. ZYPREXA [Concomitant]
     Indication: DRUG USE FOR UNKNOWN INDICATION
  7. ESKALITH [Concomitant]

REACTIONS (3)
  - ACCIDENTAL OVERDOSE [None]
  - DRUG INTERACTION [None]
  - DRUG TOXICITY [None]
